FAERS Safety Report 26191152 (Version 1)
Quarter: 2025Q4

REPORT INFORMATION
  Report Type: Spontaneous
  Country: TR (occurrence: TR)
  Receive Date: 20251223
  Receipt Date: 20251223
  Transmission Date: 20260119
  Serious: Yes (Other)
  Sender: SOMERSET THERAPEUTICS, LLC
  Company Number: TR-MIT-25-75-TR-2025-SOM-LIT-00517

PATIENT
  Age: 34 Year
  Sex: Male

DRUGS (9)
  1. SULFAMETHOXAZOLE\TRIMETHOPRIM [Suspect]
     Active Substance: SULFAMETHOXAZOLE\TRIMETHOPRIM
     Indication: Antifungal prophylaxis
     Route: 065
  2. CYTARABINE [Concomitant]
     Active Substance: CYTARABINE
     Indication: Acute myeloid leukaemia
     Route: 065
  3. CYTARABINE [Concomitant]
     Active Substance: CYTARABINE
     Dosage: HIGH DOSE
     Route: 065
  4. CYTARABINE [Concomitant]
     Active Substance: CYTARABINE
     Dosage: HIGH DOSE
     Route: 037
  5. DAUNORUBICIN [Concomitant]
     Active Substance: DAUNORUBICIN
     Indication: Acute myeloid leukaemia
     Route: 037
  6. MITOXANTRONE [Concomitant]
     Active Substance: MITOXANTRONE HYDROCHLORIDE
     Route: 065
  7. DEXAMETHASONE [Concomitant]
     Active Substance: DEXAMETHASONE
     Indication: Nervous system disorder
     Route: 037
  8. METHOTREXATE [Concomitant]
     Active Substance: METHOTREXATE
     Indication: Nervous system disorder
     Route: 037
  9. METHOTREXATE [Concomitant]
     Active Substance: METHOTREXATE

REACTIONS (1)
  - Acute graft versus host disease in skin [Recovered/Resolved]
